FAERS Safety Report 20669993 (Version 1)
Quarter: 2022Q2

REPORT INFORMATION
  Report Type: Spontaneous
  Country: RU (occurrence: None)
  Receive Date: 20220404
  Receipt Date: 20220404
  Transmission Date: 20220720
  Serious: Yes (Death, Other)
  Sender: FDA-Public Use
  Company Number: 2022A136400

PATIENT
  Age: 45 Year
  Sex: Male

DRUGS (1)
  1. IMFINZI [Suspect]
     Active Substance: DURVALUMAB
     Indication: Small cell lung cancer extensive stage
     Route: 065

REACTIONS (5)
  - Pulmonary haemorrhage [Fatal]
  - Loss of consciousness [Fatal]
  - Interstitial lung disease [Unknown]
  - Metastatic neoplasm [Unknown]
  - COVID-19 [Unknown]
